FAERS Safety Report 6298674-6 (Version None)
Quarter: 2009Q3

REPORT INFORMATION
  Report Type: 
  Country: None (occurrence: None)
  Receive Date: 20090804
  Receipt Date: 20090729
  Transmission Date: 20100115
  Serious: Yes (Life-Threatening, Other)
  Sender: FDA-Public Use
  Company Number: 2009060023

PATIENT
  Age: 47 Year
  Sex: Female
  Weight: 90.7194 kg

DRUGS (11)
  1. SOMA [Suspect]
     Indication: RHEUMATOID ARTHRITIS
     Dosage: 2-3 TABLETS PER DAY (350 MG, AS REQUIRED), ORAL
     Route: 048
     Dates: start: 20050101
  2. AMRIX [Suspect]
     Dosage: 30 MG (30 MG, 1 IN 1 D), ORAL
     Route: 048
     Dates: start: 20090429, end: 20090429
  3. AMITRIPTYLINE HYDROCHLORIDE [Suspect]
     Dosage: 50 MG (50 MG, AT BEDTIME)
     Dates: start: 20080101
  4. LORCET (HYDROCODONE BITATRATE, ACETAMINOPHEN) [Suspect]
     Dosage: 22.5 MG (7.5 MG, 3 IN 1 D)
     Dates: start: 20080101
  5. XANAX [Suspect]
     Dosage: TWICE OR THREE TIMES DAILY (0.5 MG)
     Dates: start: 20080101
  6. LYRICA [Suspect]
     Dosage: 200 MG (100 MG, 3 IN 1 D)
     Dates: start: 20090407
  7. ATENOLOL [Concomitant]
  8. HYDROCHLOROTHIAZIDE [Concomitant]
  9. FLUTICASONE PROPIONATE [Concomitant]
  10. PROTONIX [Concomitant]
  11. ALLEGRA (FEXOFENADINE HCL) [Concomitant]

REACTIONS (9)
  - DRUG TOXICITY [None]
  - DYSPNOEA [None]
  - MEMORY IMPAIRMENT [None]
  - REFUSAL OF TREATMENT BY PATIENT [None]
  - RHEUMATOID ARTHRITIS [None]
  - SOMNOLENCE [None]
  - URINARY INCONTINENCE [None]
  - URINARY RETENTION [None]
  - VOMITING [None]
